FAERS Safety Report 7555177-6 (Version None)
Quarter: 2011Q2

REPORT INFORMATION
  Report Type: 
  Country: None (occurrence: None)
  Receive Date: 20110617
  Receipt Date: 20110602
  Transmission Date: 20111010
  Serious: No
  Sender: FDA-Public Use
  Company Number: US-B.I. PHARMACEUTICALS,INC./RIDGEFIELD-2011-BP-14571BP

PATIENT
  Sex: Female

DRUGS (12)
  1. PRADAXA [Suspect]
     Indication: ATRIAL FIBRILLATION
     Dosage: 300 MG
     Route: 048
     Dates: start: 20110101
  2. LATANOPROST [Concomitant]
     Indication: GLAUCOMA
  3. ANASTROZOLE [Concomitant]
     Dosage: 1 MG
     Route: 048
  4. AZOPT [Concomitant]
     Indication: GLAUCOMA
  5. BETOPTIC [Concomitant]
     Indication: GLAUCOMA
  6. ADVAIR DISKUS 100/50 [Concomitant]
     Indication: CHRONIC OBSTRUCTIVE PULMONARY DISEASE
     Route: 055
  7. ATENOLOL [Concomitant]
     Indication: HYPERTENSION
     Dosage: 25 MG
     Route: 048
  8. ALPHAGAN [Concomitant]
     Indication: GLAUCOMA
  9. ALBUTEROL SULFATE AUTOHALER [Concomitant]
     Indication: CHRONIC OBSTRUCTIVE PULMONARY DISEASE
     Route: 055
  10. LEVOTHYROXINE SODIUM [Concomitant]
     Indication: THYROID DISORDER
     Route: 048
  11. AMLODIPINE [Concomitant]
     Indication: HYPERTENSION
     Dosage: 10 MG
     Route: 048
  12. LASIX [Concomitant]
     Indication: HYPERTENSION
     Dosage: 20 MG
     Route: 048

REACTIONS (4)
  - GLAUCOMA [None]
  - VISION BLURRED [None]
  - ABNORMAL SENSATION IN EYE [None]
  - ABDOMINAL DISCOMFORT [None]
